FAERS Safety Report 7325465-7 (Version None)
Quarter: 2011Q1

REPORT INFORMATION
  Report Type: 
  Country: None (occurrence: None)
  Receive Date: 20110302
  Receipt Date: 20110216
  Transmission Date: 20110831
  Serious: Yes (Other)
  Sender: FDA-Public Use
  Company Number: DE-BAYER-2011-000982

PATIENT
  Sex: Female

DRUGS (3)
  1. MIRENA [Suspect]
     Indication: CONTRACEPTION
     Dosage: 20 ?G, CONT
     Route: 015
     Dates: start: 19990916, end: 20041004
  2. MIRENA [Suspect]
     Dosage: 20 ?G, CONT
     Route: 015
     Dates: start: 20041004, end: 20091007
  3. MIRENA [Suspect]
     Dosage: 20 ?G, CONT
     Route: 015
     Dates: start: 20091007, end: 20091013

REACTIONS (11)
  - DEPERSONALISATION [None]
  - DISTURBANCE IN ATTENTION [None]
  - ARRHYTHMIA [None]
  - HYPOAESTHESIA [None]
  - DEPRESSED MOOD [None]
  - LISTLESS [None]
  - FATIGUE [None]
  - EYE INFLAMMATION [None]
  - SLUGGISHNESS [None]
  - MUSCULAR WEAKNESS [None]
  - MOOD SWINGS [None]
